FAERS Safety Report 7320041-4 (Version None)
Quarter: 2011Q1

REPORT INFORMATION
  Report Type: 
  Country: None (occurrence: None)
  Receive Date: 20110228
  Receipt Date: 20110222
  Transmission Date: 20110831
  Serious: Yes (Other)
  Sender: FDA-Public Use
  Company Number: US-GENZYME-CAMP-1001072

PATIENT
  Sex: Female
  Weight: 77.551 kg

DRUGS (13)
  1. YASMIN [Concomitant]
     Indication: ORAL CONTRACEPTION
     Dosage: 3 MG, QD
     Route: 048
     Dates: start: 20080201
  2. PHENTERMINE [Concomitant]
     Indication: PRODUCT USED FOR UNKNOWN INDICATION
     Dosage: 8 MG, BID
     Route: 048
     Dates: start: 20090917
  3. LEXAPRO [Concomitant]
     Indication: DEPRESSION
     Dosage: 10 MG, QD
     Route: 048
     Dates: start: 20091015
  4. METHYLPREDNISOLONE [Concomitant]
     Dosage: 1 G, QD
     Route: 042
     Dates: start: 20091123, end: 20091125
  5. LOPRESSOR [Concomitant]
     Indication: PRODUCT USED FOR UNKNOWN INDICATION
     Dosage: 50 MG, QD
     Route: 048
     Dates: start: 20101008
  6. CAMPATH [Suspect]
     Indication: MULTIPLE SCLEROSIS
     Dosage: 12 MG, QDX5
     Route: 042
     Dates: start: 20081117, end: 20081121
  7. ATIVAN [Concomitant]
     Indication: PRODUCT USED FOR UNKNOWN INDICATION
     Dosage: 0.5 MG, PRN
     Route: 048
     Dates: start: 20091124
  8. SOMA [Concomitant]
     Indication: BACK PAIN
     Dosage: 350 MG, PRN
     Route: 048
     Dates: start: 20100526
  9. METHYLPREDNISOLONE [Concomitant]
     Indication: MULTIPLE SCLEROSIS
     Dosage: 1 G, QD
     Route: 042
     Dates: start: 20081117, end: 20081119
  10. AMBIEN [Concomitant]
     Indication: PRODUCT USED FOR UNKNOWN INDICATION
     Dosage: 12.5 MG, QD
     Route: 048
     Dates: start: 20091123
  11. CAMPATH [Suspect]
     Dosage: 12 MG, QDX3
     Route: 042
     Dates: start: 20091123, end: 20091125
  12. EXCEDRIN P.M. [Concomitant]
     Indication: INSOMNIA
     Dosage: 1 TAB, PRN
     Route: 048
     Dates: start: 20090701
  13. NUVIGIL [Concomitant]
     Indication: FATIGUE
     Dosage: 150 MG, PRN
     Route: 048
     Dates: start: 20090723

REACTIONS (2)
  - BASEDOW'S DISEASE [None]
  - THYROID CANCER [None]
